FAERS Safety Report 15406414 (Version 3)
Quarter: 2019Q1

REPORT INFORMATION
  Report Type: Report from Study
  Country: BR (occurrence: BR)
  Receive Date: 20180920
  Receipt Date: 20190208
  Transmission Date: 20190417
  Serious: Yes (Life-Threatening, Other)
  Sender: FDA-Public Use
  Company Number: BR-ROCHE-2183145

PATIENT
  Age: 53 Year
  Sex: Female
  Weight: 107 kg

DRUGS (16)
  1. XOLAIR [Suspect]
     Active Substance: OMALIZUMAB
     Route: 058
     Dates: start: 201803
  2. CORTISONE [Suspect]
     Active Substance: CORTISONE\HYDROCORTISONE
     Indication: DYSPNOEA
     Route: 065
  3. LOSARTAN. [Concomitant]
     Active Substance: LOSARTAN
     Indication: HYPERTENSION
     Dosage: 2 DF, QD
     Route: 048
  4. METFORMINA [Concomitant]
     Active Substance: METFORMIN HYDROCHLORIDE
     Indication: DIABETES MELLITUS
     Dosage: 1 DF, QHS
     Route: 065
     Dates: start: 201311
  5. AEROLIN [Concomitant]
     Active Substance: ALBUTEROL
     Indication: ASTHMA
     Dosage: UNK, ONLY IF IT LACKING, (START DATE: 10 YEARS AGO)
     Route: 055
  6. XOLAIR [Suspect]
     Active Substance: OMALIZUMAB
     Indication: ASTHMA
     Route: 058
     Dates: start: 201301
  7. GLIFAGE [Concomitant]
     Active Substance: METFORMIN HYDROCHLORIDE
     Indication: DIABETES MELLITUS
     Dosage: 4 DF, QD (STARTED 5 YEARS AGO)
     Route: 048
  8. XOLAIR [Suspect]
     Active Substance: OMALIZUMAB
     Route: 058
     Dates: start: 20140929
  9. XOLAIR [Suspect]
     Active Substance: OMALIZUMAB
     Route: 058
     Dates: start: 20180905
  10. XOLAIR [Suspect]
     Active Substance: OMALIZUMAB
     Indication: HYPERSENSITIVITY
     Route: 058
     Dates: start: 20140114
  11. CLENIL (BRAZIL) [Concomitant]
     Indication: ASTHMA
     Dosage: UNK UNK, QID (3 MONTHS AGO)
     Route: 055
  12. LOSARTANA POTASSICA [Concomitant]
     Active Substance: LOSARTAN
     Indication: HYPERTENSION
     Dosage: 1 DF, QD (USED ONLY WHEN USING CORTISONE)
     Route: 065
     Dates: start: 2004
  13. XOLAIR [Suspect]
     Active Substance: OMALIZUMAB
     Route: 058
     Dates: start: 20180904
  14. XOLAIR [Suspect]
     Active Substance: OMALIZUMAB
     Route: 058
  15. XOLAIR [Suspect]
     Active Substance: OMALIZUMAB
     Route: 058
     Dates: start: 201805
  16. CORTISONE [Suspect]
     Active Substance: CORTISONE\HYDROCORTISONE
     Indication: ASTHMA
     Dosage: ONLY WHEN PRESENTED EPISODES
     Route: 065

REACTIONS (35)
  - Feeling abnormal [Not Recovered/Not Resolved]
  - Blood glucose increased [Recovering/Resolving]
  - Headache [Recovering/Resolving]
  - Blood cholesterol increased [Not Recovered/Not Resolved]
  - Reflux gastritis [Not Recovered/Not Resolved]
  - Lip discolouration [Not Recovered/Not Resolved]
  - Nausea [Unknown]
  - Off label use [Unknown]
  - Fatigue [Not Recovered/Not Resolved]
  - Arthralgia [Recovering/Resolving]
  - Asthmatic crisis [Not Recovered/Not Resolved]
  - Parosmia [Not Recovered/Not Resolved]
  - Anxiety [Unknown]
  - Asphyxia [Not Recovered/Not Resolved]
  - Tachycardia [Not Recovered/Not Resolved]
  - Asthma [Recovered/Resolved]
  - Asthenia [Not Recovered/Not Resolved]
  - Palpitations [Unknown]
  - Malaise [Recovered/Resolved]
  - Gait inability [Unknown]
  - Spirometry abnormal [Unknown]
  - Dyspnoea [Not Recovered/Not Resolved]
  - Blood pressure increased [Recovering/Resolving]
  - Dysphonia [Not Recovered/Not Resolved]
  - Cough [Not Recovered/Not Resolved]
  - Back pain [Not Recovered/Not Resolved]
  - Trichodynia [Unknown]
  - Middle insomnia [Not Recovered/Not Resolved]
  - Dengue fever [Recovering/Resolving]
  - Productive cough [Unknown]
  - Quality of life decreased [Not Recovered/Not Resolved]
  - Eating disorder [Recovering/Resolving]
  - Heart rate increased [Unknown]
  - Hypersensitivity [Unknown]
  - Product use in unapproved indication [Unknown]

NARRATIVE: CASE EVENT DATE: 201803
